FAERS Safety Report 7184822-2 (Version None)
Quarter: 2010Q4

REPORT INFORMATION
  Report Type: 
  Country: None (occurrence: None)
  Receive Date: 20101222
  Receipt Date: 20100526
  Transmission Date: 20110411
  Serious: No
  Sender: FDA-Public Use
  Company Number: US-AMGEN-KDL414706

PATIENT

DRUGS (10)
  1. ENBREL [Suspect]
     Indication: PRODUCT USED FOR UNKNOWN INDICATION
     Dosage: 50 MG, QWK
     Route: 058
  2. DULOXETIME HYDROCHLORIDE [Concomitant]
     Dosage: 60 MG, UNK
  3. MONTELUKAST [Concomitant]
     Dosage: 10 MG, UNK
  4. CYCLOBENZAPRINE HCL [Concomitant]
     Dosage: 10 MG, UNK
  5. HYDROXYCHLOROQUINE SULFATE [Concomitant]
     Dosage: 200 MG, UNK
  6. LEVOTHYROXINE SODIUM [Concomitant]
     Dosage: 25 MG, UNK
  7. FEXOFENADINE HCL [Concomitant]
     Dosage: 60 MG, UNK
  8. GLYBURIDE AND METFORMIN HYDROCHLORIDE [Concomitant]
     Dosage: UNK UNK, UNK
  9. CYANOCOBALAMIN [Concomitant]
     Dosage: 1000 MG, UNK
  10. CLOPIDOGREL BISULFATE [Concomitant]
     Dosage: 75 MG, UNK

REACTIONS (2)
  - PARANASAL SINUS HYPERSECRETION [None]
  - SINUS HEADACHE [None]
